FAERS Safety Report 11590664 (Version 3)
Quarter: 2015Q4

REPORT INFORMATION
  Report Type: Spontaneous
  Country: US (occurrence: US)
  Receive Date: 20151002
  Receipt Date: 20151124
  Transmission Date: 20160304
  Serious: Yes (Death, Hospitalization, Other)
  Sender: FDA-Public Use
  Company Number: US-INCYTE CORPORATION-2015IN004968

PATIENT
  Age: 64 Year
  Sex: Male

DRUGS (2)
  1. JAKAFI [Suspect]
     Active Substance: RUXOLITINIB
     Indication: MYELOFIBROSIS
     Dosage: 20 MG, BID
     Route: 048
     Dates: start: 20150915
  2. JAKAFI [Suspect]
     Active Substance: RUXOLITINIB
     Indication: POLYCYTHAEMIA VERA
     Dosage: 20 MG, BID
     Route: 048
     Dates: start: 20150714, end: 20150911

REACTIONS (26)
  - Generalised oedema [Unknown]
  - Pelvic pain [Unknown]
  - Decreased appetite [Unknown]
  - Headache [Unknown]
  - Night sweats [Unknown]
  - Insomnia [Unknown]
  - Arthralgia [Unknown]
  - Dizziness [Unknown]
  - Dyspnoea [Unknown]
  - Musculoskeletal pain [Unknown]
  - Contusion [Unknown]
  - Supraventricular tachycardia [Unknown]
  - Hyperhidrosis [Unknown]
  - Viral infection [Unknown]
  - Fatigue [Unknown]
  - Cough [Unknown]
  - Splenomegaly [Unknown]
  - Pyrexia [Unknown]
  - Mood altered [Unknown]
  - Acute myeloid leukaemia [Fatal]
  - Acute kidney injury [Unknown]
  - Tumour lysis syndrome [Unknown]
  - Myalgia [Unknown]
  - Neuropathy peripheral [Unknown]
  - General physical health deterioration [Unknown]
  - Mucosal inflammation [Unknown]

NARRATIVE: CASE EVENT DATE: 201509
